FAERS Safety Report 15419735 (Version 2)
Quarter: 2018Q3

REPORT INFORMATION
  Report Type: Other
  Country: SE (occurrence: SE)
  Receive Date: 20180924
  Receipt Date: 20180925
  Transmission Date: 20181010
  Serious: Yes (Other)
  Sender: FDA-Public Use
  Company Number: SE-RARE DISEASE THERAPEUTICS, INC.-2055275

PATIENT
  Age: 12 Month

DRUGS (6)
  1. CYTARABINE. [Suspect]
     Active Substance: CYTARABINE
     Route: 065
     Dates: start: 201801
  2. PURIXAN [Suspect]
     Active Substance: MERCAPTOPURINE
     Indication: LANGERHANS^ CELL HISTIOCYTOSIS
     Route: 048
  3. CLADRIBINE. [Suspect]
     Active Substance: CLADRIBINE
     Route: 065
  4. PREDNISOLONE. [Suspect]
     Active Substance: PREDNISOLONE
     Route: 065
     Dates: start: 201711
  5. METHOTREXATE. [Suspect]
     Active Substance: METHOTREXATE
  6. VINBLASTINE [Suspect]
     Active Substance: VINBLASTINE
     Route: 065
     Dates: start: 201711

REACTIONS (2)
  - Disease progression [None]
  - Off label use [None]
